FAERS Safety Report 20895451 (Version 4)
Quarter: 2022Q4

REPORT INFORMATION
  Report Type: Report from Study
  Country: US (occurrence: US)
  Receive Date: 20220531
  Receipt Date: 20221206
  Transmission Date: 20230113
  Serious: Yes (Hospitalization)
  Sender: FDA-Public Use
  Company Number: US-ALKERMES INC.-ALK-2022-002529

PATIENT
  Age: 36 Year
  Sex: Male

DRUGS (24)
  1. VIVITROL [Suspect]
     Active Substance: NALTREXONE
     Indication: Drug use disorder
     Dosage: 380 MILLIGRAM, QMO
     Route: 030
     Dates: start: 20220516
  2. BUPRENORPHINE [Suspect]
     Active Substance: BUPRENORPHINE
     Indication: Drug use disorder
     Dosage: 8 MILLIGRAM, ONE TIME DOSE
     Route: 048
     Dates: start: 20220512, end: 20220512
  3. NALTREXONE [Suspect]
     Active Substance: NALTREXONE
     Indication: Drug use disorder
     Dosage: 6.0 MILLIGRAM, ONE TIME DOSE
     Route: 048
     Dates: start: 20220516, end: 20220516
  4. NALTREXONE [Suspect]
     Active Substance: NALTREXONE
     Dosage: 6.0 MILLIGRAM, ONE TIME DOSE
     Route: 048
     Dates: start: 20220515, end: 20220515
  5. NALTREXONE [Suspect]
     Active Substance: NALTREXONE
     Dosage: 1.5 MILLIGRAM, ONE TIME DOSE
     Route: 048
     Dates: start: 20220514, end: 20220514
  6. LORAZEPAM [Concomitant]
     Active Substance: LORAZEPAM
     Indication: Product used for unknown indication
     Dosage: UNK
     Route: 065
  7. TRAZODONE [Concomitant]
     Active Substance: TRAZODONE HYDROCHLORIDE
     Indication: Product used for unknown indication
     Dosage: 150 MILLIGRAM, HS
     Route: 048
  8. TRAZODONE [Concomitant]
     Active Substance: TRAZODONE HYDROCHLORIDE
     Dosage: UNK
     Route: 065
  9. IBUPROFEN [Concomitant]
     Active Substance: IBUPROFEN
     Indication: Product used for unknown indication
     Dosage: UNK
     Route: 065
  10. HYDROXYZINE [Concomitant]
     Active Substance: HYDROXYZINE HYDROCHLORIDE
     Indication: Product used for unknown indication
     Dosage: UNK
     Route: 065
  11. ONDANSETRON [Concomitant]
     Active Substance: ONDANSETRON
     Indication: Product used for unknown indication
     Dosage: UNK
     Route: 065
  12. LOPERAMIDE [Concomitant]
     Active Substance: LOPERAMIDE
     Indication: Product used for unknown indication
     Dosage: UNK
     Route: 065
  13. QUETIAPINE [Concomitant]
     Active Substance: QUETIAPINE
     Indication: Product used for unknown indication
     Dosage: UNK
     Route: 065
  14. CLONIDINE [Concomitant]
     Active Substance: CLONIDINE
     Indication: Product used for unknown indication
     Dosage: 0.3 MILLIGRAM, ONE TIME DOSE
     Route: 048
     Dates: start: 20220515, end: 20220515
  15. CLONIDINE [Concomitant]
     Active Substance: CLONIDINE
     Dosage: 0.2 MILLIGRAM, ONE TIME DOSE
     Route: 048
     Dates: start: 20220514, end: 20220514
  16. CLONIDINE [Concomitant]
     Active Substance: CLONIDINE
     Dosage: 0.2 MILLIGRAM, ONE TIME DOSE
     Route: 048
     Dates: start: 20220513, end: 20220513
  17. CLONIDINE [Concomitant]
     Active Substance: CLONIDINE
     Dosage: 0.2 MILLIGRAM, ONE TIME DOSE
     Route: 048
     Dates: start: 20220512, end: 20220512
  18. CLONAZEPAM [Concomitant]
     Active Substance: CLONAZEPAM
     Indication: Product used for unknown indication
     Dosage: 1.0 MILLIGRAM, ONE TIME DOSE
     Route: 048
     Dates: start: 20220516, end: 20220516
  19. CLONAZEPAM [Concomitant]
     Active Substance: CLONAZEPAM
     Dosage: 3.0 MILLIGRAM, ONE TIME DOSE
     Route: 048
     Dates: start: 20220515, end: 20220515
  20. CLONAZEPAM [Concomitant]
     Active Substance: CLONAZEPAM
     Dosage: 3.0 MILLIGRAM, ONE TIME DOSE
     Route: 048
     Dates: start: 20220514, end: 20220514
  21. CLONAZEPAM [Concomitant]
     Active Substance: CLONAZEPAM
     Dosage: 4.0 MILLIGRAM, ONE TIME DOSE
     Route: 048
     Dates: start: 20220513, end: 20220513
  22. CLONAZEPAM [Concomitant]
     Active Substance: CLONAZEPAM
     Dosage: 2.0 MILLIGRAM, ONE TIME DOSE
     Route: 048
     Dates: start: 20220512, end: 20220512
  23. NICOTINE [Concomitant]
     Active Substance: NICOTINE
     Indication: Product used for unknown indication
     Dosage: 21 MILLIGRAM, QD
     Route: 062
  24. ROBAXIN [Concomitant]
     Active Substance: METHOCARBAMOL
     Indication: Product used for unknown indication
     Dosage: UNK
     Route: 065

REACTIONS (1)
  - Abscess neck [Recovered/Resolved]

NARRATIVE: CASE EVENT DATE: 20220524
